FAERS Safety Report 17347318 (Version 1)
Quarter: 2020Q1

REPORT INFORMATION
  Report Type: Report from Study
  Country: US (occurrence: US)
  Receive Date: 20200129
  Receipt Date: 20200129
  Transmission Date: 20200409
  Serious: No
  Sender: FDA-Public Use
  Company Number: US-EXELIXIS-CABO-19022030

PATIENT
  Age: 75 Year
  Sex: Female

DRUGS (2)
  1. COMETRIQ [Suspect]
     Active Substance: CABOZANTINIB S-MALATE
     Indication: THYROID CANCER
     Dosage: 60 MG, QD
     Route: 048
     Dates: start: 20190605
  2. COMETRIQ [Suspect]
     Active Substance: CABOZANTINIB S-MALATE
     Dosage: 20 MG, QD
     Route: 048

REACTIONS (12)
  - Myalgia [Unknown]
  - Hyperkeratosis [Unknown]
  - Visual impairment [Unknown]
  - Stomatitis [Unknown]
  - Burning sensation [Unknown]
  - Dry skin [Unknown]
  - Fatigue [Unknown]
  - Dysphonia [Unknown]
  - Pain in extremity [Unknown]
  - Arthralgia [Unknown]
  - Decreased appetite [Unknown]
  - Weight decreased [Unknown]

NARRATIVE: CASE EVENT DATE: 201906
